FAERS Safety Report 7396550-9 (Version None)
Quarter: 2011Q2

REPORT INFORMATION
  Report Type: 
  Country: None (occurrence: None)
  Receive Date: 20110406
  Receipt Date: 20110402
  Transmission Date: 20111010
  Serious: No
  Sender: FDA-Public Use
  Company Number: US-TEVA-274938USA

PATIENT
  Sex: Female
  Weight: 52.21 kg

DRUGS (2)
  1. PLAN B ONE-STEP [Suspect]
     Indication: POST COITAL CONTRACEPTION
     Route: 048
     Dates: start: 20110327, end: 20110327
  2. TRI-SPRINTEC [Concomitant]
     Indication: CONTRACEPTION
     Route: 048

REACTIONS (1)
  - MENSTRUATION IRREGULAR [None]
